FAERS Safety Report 8180008 (Version 3)
Quarter: 2014Q4

REPORT INFORMATION
  Report Type: Spontaneous
  Country: GB (occurrence: GB)
  Receive Date: 20111013
  Receipt Date: 20141205
  Transmission Date: 20150529
  Serious: Yes (Other)
  Sender: FDA-Public Use
  Company Number: GB-PFIZER INC-2011243673

PATIENT
  Age: 38 Year
  Sex: Male
  Weight: 79.37 kg

DRUGS (1)
  1. CHAMPIX [Suspect]
     Active Substance: VARENICLINE TARTRATE
     Indication: SMOKING CESSATION THERAPY
     Dosage: UNK UG, UNK
     Route: 048
     Dates: start: 201010, end: 201012

REACTIONS (5)
  - Face injury [Unknown]
  - Memory impairment [Unknown]
  - Generalised tonic-clonic seizure [Recovered/Resolved]
  - Drug withdrawal syndrome [Recovered/Resolved]
  - Road traffic accident [Recovered/Resolved]

NARRATIVE: CASE EVENT DATE: 2011
